FAERS Safety Report 9788644 (Version 3)
Quarter: 2014Q2

REPORT INFORMATION
  Report Type: Spontaneous
  Country: DK (occurrence: GB)
  Receive Date: 20131230
  Receipt Date: 20140402
  Transmission Date: 20141212
  Serious: Yes (Death, Other)
  Sender: FDA-Public Use
  Company Number: GB-FRI-1000052482

PATIENT
  Age: 45 Year
  Sex: Female

DRUGS (24)
  1. CITALOPRAM [Suspect]
     Dosage: 40 MG
     Route: 048
  2. OXYCONTIN [Suspect]
     Indication: PAIN
     Dosage: 240 MG
  3. OXYCONTIN [Suspect]
     Dosage: 120 MG
  4. OXYNORM [Suspect]
     Indication: PAIN
     Route: 048
  5. DIAZEPAM [Suspect]
     Dosage: 10 MG
  6. AMITRIPTYLINE [Concomitant]
     Dosage: 50 MG
  7. ANTIBIOTICS [Concomitant]
  8. AZATHIOPRINE [Concomitant]
     Dosage: 75 MG
  9. CALCICHEW [Concomitant]
     Dosage: 1 DF
  10. CHLORPHENAMINE [Concomitant]
     Dosage: 4 MG
  11. CLENIL MODULITE [Concomitant]
     Dosage: 50 MCG
     Route: 055
  12. COLCHICINE [Concomitant]
     Dosage: 500 MCG
  13. LOPERAMIDE [Concomitant]
     Dosage: 2 MG
  14. OMEPRAZOLE [Concomitant]
     Dosage: 40 MG
  15. ONDANSETRON [Concomitant]
     Dosage: 8 MG
  16. OPTIVE [Concomitant]
  17. OXYBUTYNIN [Concomitant]
     Dosage: 5 MG
  18. PARACETAMOL [Concomitant]
     Dosage: 500 MG
  19. PREDNISONE [Concomitant]
     Dosage: 5 MG
  20. QUININE SULFATE [Concomitant]
     Dosage: 200 MG
  21. REGURIN [Concomitant]
     Dosage: 60 MG
  22. VENTOLIN [Concomitant]
     Dosage: 100 MCG
     Route: 055
  23. XARELTO [Concomitant]
     Dosage: 20 MG
  24. ZOPICLONE [Concomitant]
     Dosage: 7.5 MG

REACTIONS (3)
  - Respiratory failure [Fatal]
  - Accidental overdose [Fatal]
  - Drug interaction [Unknown]
